FAERS Safety Report 4682941-3 (Version None)
Quarter: 2005Q2

REPORT INFORMATION
  Report Type: 
  Country: None (occurrence: None)
  Receive Date: 20050602
  Receipt Date: 20050318
  Transmission Date: 20051028
  Serious: No
  Sender: FDA-Public Use
  Company Number: USA050393623

PATIENT
  Sex: Female

DRUGS (1)
  1. CYMBALTA [Suspect]
     Dates: start: 20050201

REACTIONS (2)
  - FEELING ABNORMAL [None]
  - MEDICATION ERROR [None]
